FAERS Safety Report 7126984-9 (Version None)
Quarter: 2010Q4

REPORT INFORMATION
  Report Type: 
  Country: None (occurrence: None)
  Receive Date: 20101129
  Receipt Date: 20100108
  Transmission Date: 20110411
  Serious: Yes (Other)
  Sender: FDA-Public Use
  Company Number: US-PFIZER INC-2010003736

PATIENT

DRUGS (1)
  1. VIAGRA [Suspect]
     Dosage: 3000 MG, UNK
     Route: 048
     Dates: start: 20100108

REACTIONS (4)
  - ERECTION INCREASED [None]
  - HAIR COLOUR CHANGES [None]
  - MEDICATION ERROR [None]
  - PENIS DISORDER [None]
